FAERS Safety Report 11883295 (Version 1)
Quarter: 2015Q4

REPORT INFORMATION
  Report Type: Spontaneous
  Country: US (occurrence: US)
  Receive Date: 20151231
  Receipt Date: 20151231
  Transmission Date: 20160305
  Serious: No
  Sender: FDA-Public Use
  Company Number: US-PFIZER INC-2015424566

PATIENT
  Age: 49 Year
  Sex: Female
  Weight: 74.84 kg

DRUGS (3)
  1. RAPAMUNE [Suspect]
     Active Substance: SIROLIMUS
     Indication: RENAL TRANSPLANT
     Dosage: TWO IN THE MORNING AND ONE AT NIGHT
     Dates: start: 20030211
  2. INSULIN [Concomitant]
     Active Substance: INSULIN NOS
     Indication: DIABETES MELLITUS
     Dosage: UNK
  3. PROGRAF [Concomitant]
     Active Substance: TACROLIMUS\TACROLIMUS ANHYDROUS
     Dosage: UNK

REACTIONS (2)
  - Peripheral swelling [Unknown]
  - Malaise [Unknown]

NARRATIVE: CASE EVENT DATE: 20151130
